FAERS Safety Report 12600047 (Version 2)
Quarter: 2016Q3

REPORT INFORMATION
  Report Type: Spontaneous
  Country: US (occurrence: US)
  Receive Date: 20160727
  Receipt Date: 20160729
  Transmission Date: 20161109
  Serious: Yes (Death, Hospitalization)
  Sender: FDA-Public Use
  Company Number: US-CELGENEUS-USA-2015062201

PATIENT
  Age: 66 Year
  Sex: Male
  Weight: 97.48 kg

DRUGS (64)
  1. REVLIMID [Suspect]
     Active Substance: LENALIDOMIDE
     Route: 048
     Dates: start: 20131112, end: 20131118
  2. REVLIMID [Suspect]
     Active Substance: LENALIDOMIDE
     Route: 048
     Dates: start: 20141013, end: 20141102
  3. REVLIMID [Suspect]
     Active Substance: LENALIDOMIDE
     Route: 048
     Dates: start: 20150202, end: 20150222
  4. REVLIMID [Suspect]
     Active Substance: LENALIDOMIDE
     Route: 048
     Dates: start: 20150330, end: 20150419
  5. DEXAMETHASONE. [Suspect]
     Active Substance: DEXAMETHASONE
     Indication: PLASMA CELL MYELOMA
     Route: 065
     Dates: start: 20131028
  6. LOPERAMIDE [Concomitant]
     Active Substance: LOPERAMIDE
     Route: 065
     Dates: start: 20140217, end: 20140527
  7. LISINOPRIL. [Concomitant]
     Active Substance: LISINOPRIL
     Route: 065
     Dates: start: 20140609
  8. TYLENOL [Concomitant]
     Active Substance: ACETAMINOPHEN
     Route: 065
     Dates: start: 20141013, end: 20150302
  9. REVLIMID [Suspect]
     Active Substance: LENALIDOMIDE
     Route: 048
     Dates: start: 20131125, end: 20131208
  10. REVLIMID [Suspect]
     Active Substance: LENALIDOMIDE
     Route: 048
     Dates: start: 20131223, end: 20140105
  11. REVLIMID [Suspect]
     Active Substance: LENALIDOMIDE
     Route: 048
     Dates: start: 20140707, end: 20140727
  12. REVLIMID [Suspect]
     Active Substance: LENALIDOMIDE
     Route: 048
     Dates: start: 20150302, end: 20150322
  13. SAR650984 [Suspect]
     Active Substance: ISATUXIMAB
     Indication: PLASMA CELL MYELOMA
     Dosage: 96.25 - 93.3 MG
     Route: 065
     Dates: start: 20150427
  14. SAR650984 [Suspect]
     Active Substance: ISATUXIMAB
     Dosage: 87.5 - 99.17 MG
     Route: 065
     Dates: start: 20140804, end: 20140818
  15. SAR650984 [Suspect]
     Active Substance: ISATUXIMAB
     Dosage: 87.5 - 99.17 MG
     Route: 065
     Dates: start: 20141110, end: 20141124
  16. SAR650984 [Suspect]
     Active Substance: ISATUXIMAB
     Route: 065
     Dates: start: 20150511, end: 20150511
  17. SAR650984 [Suspect]
     Active Substance: ISATUXIMAB
     Route: 041
     Dates: start: 20150526, end: 20150526
  18. LOPERAMIDE [Concomitant]
     Active Substance: LOPERAMIDE
     Indication: PRODUCT USED FOR UNKNOWN INDICATION
     Route: 065
     Dates: start: 20130412
  19. ASPIRIN. [Concomitant]
     Active Substance: ASPIRIN
     Indication: PROPHYLAXIS
     Route: 065
     Dates: start: 20130412
  20. BENADRYL [Concomitant]
     Active Substance: DIPHENHYDRAMINE HYDROCHLORIDE
     Route: 065
     Dates: start: 20140915, end: 2014
  21. REVLIMID [Suspect]
     Active Substance: LENALIDOMIDE
     Indication: PLASMA CELL MYELOMA
     Route: 048
     Dates: start: 20131028, end: 20131111
  22. REVLIMID [Suspect]
     Active Substance: LENALIDOMIDE
     Route: 048
     Dates: start: 20140106, end: 20140112
  23. REVLIMID [Suspect]
     Active Substance: LENALIDOMIDE
     Route: 048
     Dates: start: 20140815, end: 20140824
  24. SAR650984 [Suspect]
     Active Substance: ISATUXIMAB
     Route: 065
     Dates: start: 20150202, end: 20150216
  25. SAR650984 [Suspect]
     Active Substance: ISATUXIMAB
     Route: 065
     Dates: start: 20150526, end: 20150526
  26. VALIUM [Concomitant]
     Active Substance: DIAZEPAM
     Indication: PRODUCT USED FOR UNKNOWN INDICATION
     Route: 065
     Dates: start: 20131014
  27. LISINOPRIL. [Concomitant]
     Active Substance: LISINOPRIL
     Indication: PROPHYLAXIS
     Route: 065
     Dates: start: 20131014, end: 20140609
  28. PROCHLORPERAZINE. [Concomitant]
     Active Substance: PROCHLORPERAZINE
     Indication: PRODUCT USED FOR UNKNOWN INDICATION
     Route: 065
     Dates: start: 20140527
  29. REVLIMID [Suspect]
     Active Substance: LENALIDOMIDE
     Route: 048
     Dates: start: 20140121, end: 20140210
  30. REVLIMID [Suspect]
     Active Substance: LENALIDOMIDE
     Route: 048
     Dates: start: 20140317, end: 20140406
  31. REVLIMID [Suspect]
     Active Substance: LENALIDOMIDE
     Route: 048
     Dates: start: 20140804, end: 20140812
  32. SAR650984 [Suspect]
     Active Substance: ISATUXIMAB
     Dosage: 93.3 - 87.5 MG
     Route: 065
     Dates: start: 20140915, end: 20140929
  33. SAR650984 [Suspect]
     Active Substance: ISATUXIMAB
     Dosage: 99.17 - 90.42 MG
     Route: 065
     Dates: start: 20141013, end: 20141027
  34. SAR650984 [Suspect]
     Active Substance: ISATUXIMAB
     Dosage: 78.75 - 64.17 MG
     Route: 065
     Dates: start: 20150105, end: 20150120
  35. SAR650984 [Suspect]
     Active Substance: ISATUXIMAB
     Route: 065
     Dates: start: 20150427, end: 20150427
  36. VIAGRA [Concomitant]
     Active Substance: SILDENAFIL CITRATE
     Indication: PRODUCT USED FOR UNKNOWN INDICATION
     Route: 065
     Dates: start: 20100326
  37. ZOLPIDEM [Concomitant]
     Active Substance: ZOLPIDEM\ZOLPIDEM TARTRATE
     Indication: PRODUCT USED FOR UNKNOWN INDICATION
     Route: 065
     Dates: start: 20121116
  38. PERCOCET [Concomitant]
     Active Substance: ACETAMINOPHEN\OXYCODONE HYDROCHLORIDE
     Indication: PROPHYLAXIS
     Route: 065
     Dates: start: 20130527
  39. PEPCID [Concomitant]
     Active Substance: FAMOTIDINE
     Indication: PROPHYLAXIS
     Route: 065
     Dates: start: 20131028, end: 20140818
  40. TYLENOL [Concomitant]
     Active Substance: ACETAMINOPHEN
     Indication: PROPHYLAXIS
     Route: 065
     Dates: start: 20131028
  41. AMOXICILLIN. [Concomitant]
     Active Substance: AMOXICILLIN
     Indication: PRODUCT USED FOR UNKNOWN INDICATION
     Route: 065
     Dates: start: 20140902, end: 20140929
  42. CLARITHROMYCIN. [Concomitant]
     Active Substance: CLARITHROMYCIN
     Indication: PRODUCT USED FOR UNKNOWN INDICATION
     Route: 065
     Dates: start: 20140902, end: 20140929
  43. OMEPRAZOLE. [Concomitant]
     Active Substance: OMEPRAZOLE
     Indication: PRODUCT USED FOR UNKNOWN INDICATION
     Route: 065
     Dates: start: 20140902
  44. REVLIMID [Suspect]
     Active Substance: LENALIDOMIDE
     Route: 048
     Dates: start: 20140217, end: 20140309
  45. REVLIMID [Suspect]
     Active Substance: LENALIDOMIDE
     Route: 048
     Dates: start: 20140609, end: 20140629
  46. DEXAMETHASONE. [Suspect]
     Active Substance: DEXAMETHASONE
     Indication: PROPHYLAXIS
     Route: 048
     Dates: start: 20140317, end: 20140428
  47. PEPCID [Concomitant]
     Active Substance: FAMOTIDINE
     Route: 065
     Dates: start: 20141013, end: 20150302
  48. BENADRYL [Concomitant]
     Active Substance: DIPHENHYDRAMINE HYDROCHLORIDE
     Route: 065
     Dates: start: 20141013, end: 20150302
  49. REVLIMID [Suspect]
     Active Substance: LENALIDOMIDE
     Route: 048
     Dates: start: 20131209, end: 20131215
  50. REVLIMID [Suspect]
     Active Substance: LENALIDOMIDE
     Route: 048
     Dates: start: 20140414, end: 20140504
  51. REVLIMID [Suspect]
     Active Substance: LENALIDOMIDE
     Route: 048
     Dates: start: 20141208, end: 20141228
  52. SAR650984 [Suspect]
     Active Substance: ISATUXIMAB
     Route: 065
     Dates: start: 20131028
  53. PEPCID [Concomitant]
     Active Substance: FAMOTIDINE
     Route: 065
     Dates: start: 20140915, end: 2014
  54. REVLIMID [Suspect]
     Active Substance: LENALIDOMIDE
     Route: 048
     Dates: start: 20141110, end: 20141130
  55. REVLIMID [Suspect]
     Active Substance: LENALIDOMIDE
     Route: 048
     Dates: start: 20150105, end: 20150125
  56. SAR650984 [Suspect]
     Active Substance: ISATUXIMAB
     Dosage: 93.3 - 84.58 MG
     Route: 065
     Dates: start: 20141208, end: 20141222
  57. SAR650984 [Suspect]
     Active Substance: ISATUXIMAB
     Dosage: 99.17 - 93.33 MG
     Route: 065
     Dates: start: 20150330, end: 20150413
  58. REVLIMID [Suspect]
     Active Substance: LENALIDOMIDE
     Route: 048
     Dates: start: 20140512, end: 20140601
  59. REVLIMID [Suspect]
     Active Substance: LENALIDOMIDE
     Route: 048
     Dates: start: 20140915, end: 20141005
  60. SAR650984 [Suspect]
     Active Substance: ISATUXIMAB
     Dosage: 87.5 - 105 MG
     Route: 065
     Dates: start: 20150302, end: 20150316
  61. ACYCLOVIR. [Concomitant]
     Active Substance: ACYCLOVIR
     Indication: PROPHYLAXIS
     Route: 065
     Dates: start: 20130814
  62. BENADRYL [Concomitant]
     Active Substance: DIPHENHYDRAMINE HYDROCHLORIDE
     Indication: PROPHYLAXIS
     Route: 065
     Dates: start: 20131028
  63. ALKA-SELTZER PLUS NOS [Concomitant]
     Active Substance: ACETAMINOPHEN\ASPIRIN\CHLORPHENIRAMINE MALEATE\DEXTROMETHORPHAN HYDROBROMIDE\DIPHENHYDRAMINE HYDROCHLORIDE\DOXYLAMINE SUCCINATE\PHENYLEPHRINE BITARTRATE\PHENYLEPHRINE HYDROCHLORIDE
     Indication: PRODUCT USED FOR UNKNOWN INDICATION
     Route: 065
     Dates: start: 20141231, end: 20150202
  64. OXYCODONE ACETAMINOPHEN [Concomitant]
     Active Substance: ACETAMINOPHEN\OXYCODONE HYDROCHLORIDE
     Indication: PRODUCT USED FOR UNKNOWN INDICATION
     Route: 065
     Dates: start: 20140217, end: 20140527

REACTIONS (2)
  - Procedural haemorrhage [Fatal]
  - Lung infection [Recovered/Resolved]

NARRATIVE: CASE EVENT DATE: 20150602
